FAERS Safety Report 18666586 (Version 2)
Quarter: 2021Q1

REPORT INFORMATION
  Report Type: Report from Study
  Country: KR (occurrence: KR)
  Receive Date: 20201227
  Receipt Date: 20210105
  Transmission Date: 20210419
  Serious: Yes (Hospitalization)
  Sender: FDA-Public Use
  Company Number: KR-B.I. PHARMACEUTICALS,INC./RIDGEFIELD-2020-BI-051447

PATIENT
  Age: 54 Year
  Sex: Male
  Weight: 54.2 kg

DRUGS (7)
  1. SEVIKAR [Concomitant]
     Active Substance: AMLODIPINE BESYLATE\OLMESARTAN MEDOXOMIL
     Indication: HYPERTENSION
     Dosage: UNIT DOSE: 1 TABLET; STRENGTH 5/20
     Route: 048
  2. GILOTRIF [Suspect]
     Active Substance: AFATINIB
     Indication: LUNG NEOPLASM MALIGNANT
     Route: 048
     Dates: start: 20170504, end: 20171228
  3. NORVASC [Concomitant]
     Active Substance: AMLODIPINE BESYLATE
     Indication: HYPERTENSION
     Route: 048
  4. DIAMICRON MR [Concomitant]
     Active Substance: GLICLAZIDE
     Indication: DIABETES MELLITUS
     Dosage: UNIT DOSE: 1 TABLET
     Route: 048
  5. DICHLOZID [Concomitant]
     Indication: HYPERTENSION
     Dosage: UNIT DOSE: 0.5 TAB
     Route: 048
  6. JANUVIA [Concomitant]
     Active Substance: SITAGLIPTIN PHOSPHATE
     Indication: DIABETES MELLITUS
     Dosage: UNIT DOSE: 1 TABLET
     Route: 048
  7. GLUCERA [Concomitant]
     Indication: DIABETES MELLITUS
     Dosage: UNIT DOSE: 2 TABLET
     Route: 048

REACTIONS (5)
  - Gastroenteritis [Recovered/Resolved]
  - Diarrhoea [Not Recovered/Not Resolved]
  - Hypokalaemia [Recovered/Resolved]
  - Rash [Not Recovered/Not Resolved]
  - Stomatitis [Not Recovered/Not Resolved]

NARRATIVE: CASE EVENT DATE: 201705
